FAERS Safety Report 7849962-0 (Version None)
Quarter: 2011Q4

REPORT INFORMATION
  Report Type: 
  Country: None (occurrence: None)
  Receive Date: 20111026
  Receipt Date: 20111014
  Transmission Date: 20120403
  Serious: Yes (Hospitalization, Other)
  Sender: FDA-Public Use
  Company Number: US-BAYER-201026605NA

PATIENT
  Age: 27 Year
  Sex: Female
  Weight: 136.5 kg

DRUGS (1)
  1. YASMIN [Suspect]
     Indication: PRODUCT USED FOR UNKNOWN INDICATION
     Route: 048
     Dates: start: 20050301, end: 20050501

REACTIONS (5)
  - PAINFUL RESPIRATION [None]
  - CHOLECYSTECTOMY [None]
  - PULMONARY EMBOLISM [None]
  - PULMONARY THROMBOSIS [None]
  - CHOLECYSTITIS CHRONIC [None]
